FAERS Safety Report 5710402-9 (Version None)
Quarter: 2008Q2

REPORT INFORMATION
  Report Type: 
  Country: None (occurrence: None)
  Receive Date: 20080418
  Receipt Date: 20080410
  Transmission Date: 20081010
  Serious: Yes (Other)
  Sender: FDA-Public Use
  Company Number: JP-MERCK-0804USA00526

PATIENT
  Sex: Male

DRUGS (2)
  1. PEPCID [Suspect]
     Indication: GASTRIC ULCER HAEMORRHAGE
     Route: 041
     Dates: start: 20080326, end: 20080331
  2. PARIET [Suspect]
     Route: 048
     Dates: start: 20080326, end: 20080331

REACTIONS (1)
  - WHITE BLOOD CELL COUNT DECREASED [None]
